FAERS Safety Report 4356949-1 (Version None)
Quarter: 2004Q2

REPORT INFORMATION
  Report Type: 
  Country: None (occurrence: None)
  Receive Date: 20040507
  Receipt Date: 20040416
  Transmission Date: 20050107
  Serious: Yes (Other)
  Sender: FDA-Public Use
  Company Number: US_0404102473

PATIENT
  Age: 75 Year
  Sex: Female

DRUGS (3)
  1. EVISTA [Suspect]
  2. FOSAMAX [Concomitant]
  3. MIACALCIN [Concomitant]

REACTIONS (3)
  - BODY HEIGHT DECREASED [None]
  - DRUG INEFFECTIVE [None]
  - MULTIPLE FRACTURES [None]
